FAERS Safety Report 4406808-0 (Version None)
Quarter: 2004Q3

REPORT INFORMATION
  Report Type: 
  Country: None (occurrence: None)
  Receive Date: 20040723
  Receipt Date: 20030915
  Transmission Date: 20050211
  Serious: Yes (Death, Other)
  Sender: FDA-Public Use
  Company Number: GB-MERCK-0309USA02443

PATIENT
  Age: 41 Year
  Sex: Female

DRUGS (2)
  1. PRINIVIL [Suspect]
     Indication: BLOOD PRESSURE INCREASED
     Route: 048
  2. PRAVASTATIN [Suspect]
     Indication: LIPIDS INCREASED
     Route: 048
     Dates: start: 20020101

REACTIONS (2)
  - ABORTION MISSED [None]
  - DRUG EXPOSURE DURING PREGNANCY [None]
